FAERS Safety Report 6238753-2 (Version None)
Quarter: 2009Q2

REPORT INFORMATION
  Report Type: 
  Country: None (occurrence: None)
  Receive Date: 20090622
  Receipt Date: 20090609
  Transmission Date: 20091009
  Serious: Yes (Disabling)
  Sender: FDA-Public Use
  Company Number: US-ELI_LILLY_AND_COMPANY-US200906002348

PATIENT
  Sex: Male

DRUGS (9)
  1. CYMBALTA [Suspect]
     Indication: PAIN
     Dosage: 30 MG, UNK
     Dates: start: 20081001, end: 20080101
  2. CYMBALTA [Suspect]
     Dosage: 60 MG, UNK
     Dates: start: 20080101, end: 20080101
  3. CYMBALTA [Suspect]
     Dosage: 60 MG, UNK
     Dates: start: 20090101
  4. LODINE [Concomitant]
  5. ATENOLOL [Concomitant]
     Indication: BLOOD PRESSURE
  6. FIORINAL [Concomitant]
     Indication: MIGRAINE
  7. DONNATAL [Concomitant]
     Indication: IRRITABLE BOWEL SYNDROME
  8. VICODIN [Concomitant]
     Indication: PAIN
  9. NEURONTIN [Concomitant]

REACTIONS (3)
  - MUSCULOSKELETAL PAIN [None]
  - SCIATICA [None]
  - TESTICULAR PAIN [None]
